FAERS Safety Report 9217374 (Version 1)
Quarter: 2013Q2

REPORT INFORMATION
  Report Type: Spontaneous
  Country: US (occurrence: None)
  Receive Date: 20130404
  Receipt Date: 20130404
  Transmission Date: 20140414
  Serious: Yes (Other)
  Sender: FDA-Public Use
  Company Number: RLI2013-MOR-116

PATIENT
  Age: 28 Year
  Sex: 0
  Weight: 63.5 kg

DRUGS (1)
  1. MORPHINE SULFATE [Suspect]
     Indication: INVESTIGATION
     Route: 048
     Dates: start: 20120602

REACTIONS (2)
  - Abortion spontaneous [None]
  - Maternal exposure during pregnancy [None]
